FAERS Safety Report 22223094 (Version 2)
Quarter: 2023Q2

REPORT INFORMATION
  Report Type: Spontaneous
  Country: US (occurrence: US)
  Receive Date: 20230418
  Receipt Date: 20230607
  Transmission Date: 20230722
  Serious: No
  Sender: FDA-Public Use
  Company Number: US-PFIZER INC-PV202300067122

PATIENT
  Age: 9 Year
  Sex: Male

DRUGS (2)
  1. GENOTROPIN [Suspect]
     Active Substance: SOMATROPIN
     Dosage: 1.2 MG (1.2MG ALTERNATING WITH 1.4MG)
     Dates: start: 202301
  2. GENOTROPIN [Suspect]
     Active Substance: SOMATROPIN
     Dosage: 1.4 MG (1.2MG ALTERNATING WITH 1.4MG)
     Dates: start: 202301

REACTIONS (4)
  - Device use confusion [Unknown]
  - Device difficult to use [Unknown]
  - Injection site pain [Unknown]
  - Anxiety [Unknown]
